FAERS Safety Report 6481605-3 (Version None)
Quarter: 2009Q4

REPORT INFORMATION
  Report Type: 
  Country: None (occurrence: None)
  Receive Date: 20091208
  Receipt Date: 20091123
  Transmission Date: 20100525
  Serious: Yes (Other)
  Sender: FDA-Public Use
  Company Number: US-SANOFI-AVENTIS-2009SA006254

PATIENT
  Age: 45 Year
  Sex: Female

DRUGS (10)
  1. OXALIPLATIN [Suspect]
     Route: 042
     Dates: start: 20090324, end: 20090324
  2. OXALIPLATIN [Suspect]
     Route: 042
     Dates: start: 20090519, end: 20090519
  3. INVESTIGATIONAL DRUG [Suspect]
     Route: 042
     Dates: start: 20090324, end: 20090324
  4. INVESTIGATIONAL DRUG [Suspect]
     Route: 042
     Dates: start: 20090519, end: 20090519
  5. FLUOROURACIL [Suspect]
     Route: 042
     Dates: start: 20090324, end: 20090324
  6. FLUOROURACIL [Suspect]
     Route: 042
     Dates: start: 20090519, end: 20090519
  7. FOLINIC ACID [Suspect]
     Route: 042
     Dates: start: 20090324, end: 20090324
  8. FOLINIC ACID [Suspect]
     Route: 042
     Dates: start: 20090519, end: 20090519
  9. BEVACIZUMAB [Suspect]
     Route: 042
     Dates: start: 20090324, end: 20090324
  10. BEVACIZUMAB [Suspect]
     Route: 042
     Dates: start: 20090519, end: 20090519

REACTIONS (1)
  - FEMALE GENITAL TRACT FISTULA [None]
